FAERS Safety Report 7423086-9 (Version None)
Quarter: 2011Q2

REPORT INFORMATION
  Report Type: 
  Country: None (occurrence: None)
  Receive Date: 20110419
  Receipt Date: 20110408
  Transmission Date: 20111010
  Serious: Yes (Disabling)
  Sender: FDA-Public Use
  Company Number: GB-JNJFOC-20110404259

PATIENT
  Age: 20 Year
  Sex: Female

DRUGS (2)
  1. BOOTS NICASSIST 10 MG PATCH [Suspect]
     Indication: PRODUCT USED FOR UNKNOWN INDICATION
     Route: 062
  2. BOOTS NICASSIST 10 MG PATCH [Suspect]
     Route: 062

REACTIONS (3)
  - NAUSEA [None]
  - APPLICATION SITE BURN [None]
  - DIZZINESS [None]
